FAERS Safety Report 4475170-X (Version None)
Quarter: 2004Q4

REPORT INFORMATION
  Report Type: 
  Country: None (occurrence: None)
  Receive Date: 20041013
  Receipt Date: 20041013
  Transmission Date: 20050328
  Serious: Yes (Hospitalization)
  Sender: FDA-Public Use
  Company Number: None

PATIENT
  Age: 61 Year
  Sex: Female

DRUGS (9)
  1. GEMCITIBINE [Suspect]
     Indication: NON-SMALL CELL LUNG CANCER METASTATIC
     Dosage: 100 MG/M2   ON DAY 1 AND 8   INTRAVENOU
     Route: 042
  2. CARBOPLATIN [Suspect]
     Dosage: ADC OF 5   ON DAY 1   INTRAVENOU
     Route: 042
  3. TENORMIN [Concomitant]
  4. ZOCOR [Concomitant]
  5. IMDUR [Concomitant]
  6. PLAVIX [Concomitant]
  7. DILTIAZEM -TIAZAC- [Concomitant]
  8. SUBLINGUAL NITROGLYCERIN [Concomitant]
  9. AMITRIPTYLINE -ELAVIL- [Concomitant]

REACTIONS (3)
  - HAEMODIALYSIS [None]
  - RENAL FAILURE ACUTE [None]
  - THROMBOTIC MICROANGIOPATHY [None]
